FAERS Safety Report 4497520-0 (Version None)
Quarter: 2004Q4

REPORT INFORMATION
  Report Type: 
  Country: None (occurrence: None)
  Receive Date: 20041110
  Receipt Date: 20041103
  Transmission Date: 20050328
  Serious: Yes (Other)
  Sender: FDA-Public Use
  Company Number: BR-ROCHE-385367

PATIENT
  Sex: Female
  Weight: 49 kg

DRUGS (1)
  1. ROACUTAN [Suspect]
     Indication: ACNE
     Route: 048
     Dates: start: 20040315

REACTIONS (1)
  - NEPHROLITHIASIS [None]
